FAERS Safety Report 8416602-1 (Version None)
Quarter: 2012Q2

REPORT INFORMATION
  Report Type: 
  Country: None (occurrence: None)
  Receive Date: 20120606
  Receipt Date: 20120604
  Transmission Date: 20120825
  Serious: Yes (Death, Hospitalization)
  Sender: FDA-Public Use
  Company Number: DE-ROCHE-1072954

PATIENT
  Age: 60 Year
  Sex: Female
  Weight: 60 kg

DRUGS (35)
  1. TEMOZOLOMIDE [Suspect]
     Indication: BRAIN NEOPLASM MALIGNANT
     Dosage: LAST DOSE PRIOR TO SAE WAS 23/JAN/2012
     Route: 048
     Dates: start: 20111013
  2. DEXAMETHASONE [Suspect]
     Dates: start: 20120115, end: 20120122
  3. ENOXAPARIN [Concomitant]
     Dosage: CLEXANE
     Dates: start: 20111110, end: 20111120
  4. FENISTIL [Concomitant]
     Dates: start: 20111203
  5. DULCOLAX [Concomitant]
     Dosage: TOTAL DAILY DOSE 8 DROPS
     Dates: start: 20111109
  6. AVASTIN [Suspect]
     Indication: BRAIN NEOPLASM MALIGNANT
     Dosage: LAST DOSE PRIOR TO SAE WAS ON 28/FEB/2012
     Route: 042
  7. DEXAMETHASONE [Suspect]
     Dates: start: 20110916, end: 20110921
  8. GRANISETRON [Concomitant]
     Dates: start: 20111013, end: 20111124
  9. DEXAMETHASONE [Suspect]
     Dates: start: 20110913, end: 20110915
  10. DEXAMETHASONE [Suspect]
     Dates: start: 20110928, end: 20111124
  11. DEXAMETHASONE [Suspect]
     Dates: start: 20120206, end: 20120212
  12. DEXAMETHASONE [Suspect]
     Dates: start: 20120213, end: 20120219
  13. DEXAMETHASONE [Suspect]
     Dates: start: 20120220, end: 20120226
  14. LEVETIRACETAM [Concomitant]
     Dates: start: 20120115, end: 20120319
  15. LEVETIRACETAM [Concomitant]
     Dates: start: 20120323
  16. DEXAMETHASONE [Suspect]
     Dates: start: 20111220, end: 20120104
  17. DEXAMETHASONE [Suspect]
     Dates: start: 20120105, end: 20120114
  18. DEXAMETHASONE [Suspect]
     Dates: start: 20120130, end: 20120205
  19. DEXAMETHASONE [Suspect]
     Indication: BRAIN NEOPLASM MALIGNANT
     Dates: start: 20110922, end: 20110927
  20. DEXAMETHASONE [Suspect]
     Dates: start: 20120322, end: 20120325
  21. DEXAMETHASONE [Suspect]
     Dates: start: 20111206, end: 20111219
  22. DEXAMETHASONE [Suspect]
     Dates: start: 20120123, end: 20120129
  23. DEXAMETHASONE [Suspect]
     Dates: start: 20120320, end: 20120321
  24. DEXAMETHASONE [Suspect]
     Dates: start: 20120326
  25. ENOXAPARIN [Concomitant]
     Dates: start: 20111206, end: 20120114
  26. ENOXAPARIN [Concomitant]
     Dates: start: 20120115
  27. INNOHEP [Concomitant]
     Dosage: TOTAL DAILY DOSE 14000 IE
     Dates: start: 20111110, end: 20111121
  28. DEXAMETHASONE [Suspect]
     Dates: start: 20111125, end: 20111127
  29. DEXAMETHASONE [Suspect]
     Dates: start: 20120227, end: 20120319
  30. LEVOTHYROXINE SODIUM [Concomitant]
     Dates: start: 19950101
  31. MOVIPREP [Concomitant]
     Dosage: 2 SACHETS
     Dates: start: 20111202
  32. PANTOPRAZOLE [Concomitant]
     Dates: start: 20111203
  33. LEVETIRACETAM [Concomitant]
     Dates: start: 20120320, end: 20120322
  34. OMEPRAZOLE [Concomitant]
     Dates: start: 20110913, end: 20111127
  35. OMEPRAZOLE [Concomitant]
     Dates: start: 20111128, end: 20111202

REACTIONS (2)
  - LARGE INTESTINE PERFORATION [None]
  - PERITONITIS [None]
